FAERS Safety Report 22012345 (Version 1)
Quarter: 2023Q1

REPORT INFORMATION
  Report Type: Spontaneous
  Country: US (occurrence: US)
  Receive Date: 20230220
  Receipt Date: 20230220
  Transmission Date: 20230417
  Serious: No
  Sender: FDA-Public Use
  Company Number: US-ALLERGAN-2207503US

PATIENT
  Age: 72 Year
  Sex: Male

DRUGS (4)
  1. OZURDEX [Suspect]
     Active Substance: DEXAMETHASONE
     Indication: Radial keratotomy
     Dosage: 0.7 MG, SINGLE
     Route: 031
     Dates: start: 20220228, end: 20220228
  2. PREDNISOLONE [Concomitant]
     Active Substance: PREDNISOLONE
     Indication: Macular oedema
     Dosage: UNK
     Dates: end: 20220310
  3. PREDNISOLONE [Concomitant]
     Active Substance: PREDNISOLONE
     Dosage: 1 GTT, QD
     Dates: start: 20220303
  4. PREDNISOLONE [Concomitant]
     Active Substance: PREDNISOLONE
     Dosage: 1 GTT, BID
     Route: 047

REACTIONS (4)
  - Corneal opacity [Unknown]
  - Off label use [Unknown]
  - Intraocular pressure increased [Recovered/Resolved]
  - Corneal oedema [Recovered/Resolved]

NARRATIVE: CASE EVENT DATE: 20220228
